FAERS Safety Report 18296858 (Version 2)
Quarter: 2020Q3

REPORT INFORMATION
  Report Type: Spontaneous
  Country: US (occurrence: US)
  Receive Date: 20200922
  Receipt Date: 20200923
  Transmission Date: 20201103
  Serious: No
  Sender: FDA-Public Use
  Company Number: US-TEVA-2020-US-1829247

PATIENT
  Sex: Male

DRUGS (2)
  1. PRIMIDONE TEVA [Suspect]
     Active Substance: PRIMIDONE
     Route: 065
  2. PRIMIDONE TEVA [Suspect]
     Active Substance: PRIMIDONE
     Route: 065

REACTIONS (1)
  - Therapeutic product effect incomplete [Unknown]
